FAERS Safety Report 15111666 (Version 1)
Quarter: 2018Q3

REPORT INFORMATION
  Report Type: Report from Study
  Country: DE (occurrence: DE)
  Receive Date: 20180705
  Receipt Date: 20180705
  Transmission Date: 20181010
  Serious: Yes (Congenital Anomaly)
  Sender: FDA-Public Use
  Company Number: DE-TEVA-2018-DE-919882

PATIENT
  Sex: Male

DRUGS (4)
  1. LISINOPRIL. [Suspect]
     Active Substance: LISINOPRIL
     Indication: HYPERTENSION
     Dosage: EXPOSURE DURATION: 0?6+5 WEEKS
     Route: 064
  2. DEQUALINIUM [Concomitant]
     Active Substance: DEQUALINIUM
     Dosage: EXPOSURE DURATION: 11?12 WEEKS
     Route: 064
  3. OPIPRAMOL [Concomitant]
     Active Substance: OPIPRAMOL
     Dosage: EXPOSURE DURATION: 0?6+5 WEEKS
     Route: 064
  4. NYSTATIN. [Concomitant]
     Active Substance: NYSTATIN
     Dosage: EXPOSURE DURATION: 20 WEEKS
     Route: 064

REACTIONS (4)
  - Foetal exposure during pregnancy [Unknown]
  - Transposition of the great vessels [Unknown]
  - Patent ductus arteriosus [Unknown]
  - Atrial septal defect [Unknown]
